FAERS Safety Report 4592746-X (Version None)
Quarter: 2005Q1

REPORT INFORMATION
  Report Type: 
  Country: None (occurrence: None)
  Receive Date: 20050218
  Receipt Date: 20050204
  Transmission Date: 20050727
  Serious: Yes (Hospitalization, Other)
  Sender: FDA-Public Use
  Company Number: 2004119689

PATIENT
  Age: 63 Year
  Sex: Male

DRUGS (9)
  1. CELEBREX [Suspect]
     Indication: CARPAL TUNNEL SYNDROME
     Dosage: UNK (200 MG); ORAL
     Route: 048
     Dates: start: 20020130, end: 20021220
  2. CELEBREX [Suspect]
     Indication: OSTEOARTHRITIS
     Dosage: UNK (200 MG); ORAL
     Route: 048
     Dates: start: 20020130, end: 20021220
  3. CELEBREX [Suspect]
     Indication: TENDON DISORDER
     Dosage: UNK (200 MG); ORAL
     Route: 048
     Dates: start: 20020130, end: 20021220
  4. BEXTRA [Suspect]
     Indication: ARTHRITIS
     Dosage: UNK (20 MG, UNKNOWN); ORAL
     Route: 048
     Dates: start: 20030813
  5. ALLOPURINOL [Concomitant]
  6. TOLPERISONE [Concomitant]
  7. BUPIVACAINE [Concomitant]
  8. SUPERTENDIN (CYANOCOBALAMIN, DEXAMETHASONE, DIPHENHYDRAMINE HYDROCHLOR [Concomitant]
  9. CANDESARTAN CILEXETIL [Concomitant]

REACTIONS (12)
  - ATRIAL FIBRILLATION [None]
  - BACTERIAL INFECTION [None]
  - CARPAL TUNNEL SYNDROME [None]
  - DRUG INTOLERANCE [None]
  - EPICONDYLITIS [None]
  - GASTRIC ULCER [None]
  - GASTRIC ULCER HAEMORRHAGE [None]
  - HYPERTENSION [None]
  - LIGAMENT DISORDER [None]
  - MUSCULOSKELETAL DISORDER [None]
  - OSTEOARTHRITIS [None]
  - TENDON DISORDER [None]
